FAERS Safety Report 4855430-0 (Version None)
Quarter: 2005Q4

REPORT INFORMATION
  Report Type: 
  Country: None (occurrence: None)
  Receive Date: 20051125
  Receipt Date: 20041018
  Transmission Date: 20060501
  Serious: Yes (Hospitalization)
  Sender: FDA-Public Use
  Company Number: 800165

PATIENT
  Age: 53 Year
  Sex: Male
  Weight: 67.5406 kg

DRUGS (5)
  1. DIANEAL [Suspect]
     Indication: PERITONEAL DIALYSIS
     Dosage: 10 L;EVERY DAY;IP
     Dates: start: 20040601
  2. ASPIRIN [Concomitant]
  3. GLYBURIDE [Concomitant]
  4. FUROSEMIDE [Concomitant]
  5. NIFEDIPINE [Concomitant]

REACTIONS (3)
  - ENTEROBACTER INFECTION [None]
  - INFECTION [None]
  - PERITONITIS BACTERIAL [None]
